FAERS Safety Report 8125604-4 (Version None)
Quarter: 2012Q1

REPORT INFORMATION
  Report Type: 
  Country: None (occurrence: None)
  Receive Date: 20120209
  Receipt Date: 20120131
  Transmission Date: 20120608
  Serious: Yes (Other)
  Sender: FDA-Public Use
  Company Number: NO-PFIZER INC-2012035048

PATIENT
  Age: 56 Year
  Sex: Male

DRUGS (2)
  1. REMERON [Suspect]
  2. EFFEXOR [Suspect]

REACTIONS (9)
  - PARAESTHESIA [None]
  - FATIGUE [None]
  - ATAXIA [None]
  - HEADACHE [None]
  - COORDINATION ABNORMAL [None]
  - MUSCULAR WEAKNESS [None]
  - MUSCLE CONTRACTIONS INVOLUNTARY [None]
  - TUNNEL VISION [None]
  - NAUSEA [None]
